FAERS Safety Report 21218524 (Version 1)
Quarter: 2022Q3

REPORT INFORMATION
  Report Type: Spontaneous
  Country: US (occurrence: None)
  Receive Date: 20220816
  Receipt Date: 20220816
  Transmission Date: 20221027
  Serious: Yes (Death)
  Sender: FDA-Public Use
  Company Number: None

PATIENT
  Sex: Male

DRUGS (1)
  1. DROXIDOPA [Suspect]
     Active Substance: DROXIDOPA
     Indication: Parkinson^s disease
     Dosage: ?100MG THREE TIMES A DAY ORAL
     Route: 048
     Dates: start: 20220107, end: 20220725

REACTIONS (2)
  - Parkinson^s disease [None]
  - Disease progression [None]
